FAERS Safety Report 24077333 (Version 1)
Quarter: 2024Q3

REPORT INFORMATION
  Report Type: Spontaneous
  Country: DE (occurrence: DE)
  Receive Date: 20240711
  Receipt Date: 20240711
  Transmission Date: 20241017
  Serious: No
  Sender: PIERRE FABRE MEDICAMENT
  Company Number: DE-PFM-2023-03831

PATIENT
  Age: 7 Year
  Sex: Male

DRUGS (4)
  1. PROPRANOLOL [Suspect]
     Active Substance: PROPRANOLOL HYDROCHLORIDE
     Indication: Tremor
     Dosage: UP TO 240 MG/DAY
     Route: 065
  2. PROPRANOLOL [Suspect]
     Active Substance: PROPRANOLOL HYDROCHLORIDE
     Indication: Off label use
  3. PRIMIDONE [Concomitant]
     Active Substance: PRIMIDONE
     Indication: Tremor
     Dosage: UP TO 250 MG/DAY
     Route: 065
  4. LEVODOPA [Concomitant]
     Active Substance: LEVODOPA
     Indication: Tremor
     Dosage: UNK
     Route: 065

REACTIONS (3)
  - Product administered to patient of inappropriate age [Unknown]
  - Drug ineffective for unapproved indication [Unknown]
  - Off label use [Unknown]
